FAERS Safety Report 6344016-7 (Version None)
Quarter: 2009Q3

REPORT INFORMATION
  Report Type: 
  Country: None (occurrence: None)
  Receive Date: 20090908
  Receipt Date: 20090827
  Transmission Date: 20100115
  Serious: Yes (Death)
  Sender: FDA-Public Use
  Company Number: JP-PFIZER INC-2009263282

PATIENT
  Age: 80 Year

DRUGS (14)
  1. SILDENAFIL CITRATE [Suspect]
     Indication: PULMONARY ARTERIAL HYPERTENSION
     Dosage: 20 MG, 3X/DAY
     Route: 048
     Dates: start: 20081216, end: 20090501
  2. LASIX [Concomitant]
     Route: 048
  3. ALDACTONE [Concomitant]
     Route: 048
  4. FLUITRAN [Concomitant]
     Route: 048
  5. ACARDI [Concomitant]
     Route: 048
  6. DIART [Concomitant]
     Route: 048
  7. DORNER [Concomitant]
     Route: 048
     Dates: start: 20080610, end: 20080613
  8. TRACLEER [Concomitant]
     Route: 048
     Dates: start: 20081201
  9. BERAPROST SODIUM [Concomitant]
     Route: 048
     Dates: start: 20080614
  10. WARFARIN POTASSIUM [Concomitant]
     Route: 048
  11. ARTIST [Concomitant]
     Route: 048
  12. PURSENNID [Concomitant]
     Route: 048
  13. MEIACT [Concomitant]
     Route: 048
  14. INSULIN [Concomitant]
     Route: 058

REACTIONS (1)
  - DEATH [None]
